FAERS Safety Report 5072236-0 (Version None)
Quarter: 2006Q3

REPORT INFORMATION
  Report Type: 
  Country: None (occurrence: None)
  Receive Date: 20060801
  Receipt Date: 20060715
  Transmission Date: 20061208
  Serious: Yes (Hospitalization)
  Sender: FDA-Public Use
  Company Number: S06-CAN-02795-01

PATIENT
  Age: 62 Year
  Sex: Male

DRUGS (7)
  1. TIAZAC [Suspect]
     Indication: HYPERTENSION
     Dates: start: 20060424, end: 20060427
  2. ATORVASTATIN CALCIUM [Concomitant]
  3. ADVAIR DISKUS 100/50 [Concomitant]
  4. ISOSORBIDE DINITRATE [Concomitant]
  5. GLICLAZIDE [Concomitant]
  6. ENALAPRIL MALEATE [Concomitant]
  7. ASPIRIN [Concomitant]

REACTIONS (3)
  - CARDIAC FAILURE CONGESTIVE [None]
  - CONDITION AGGRAVATED [None]
  - MYOCARDIAL ISCHAEMIA [None]
